FAERS Safety Report 16155455 (Version 1)
Quarter: 2019Q2

REPORT INFORMATION
  Report Type: Spontaneous
  Country: US (occurrence: US)
  Receive Date: 20190403
  Receipt Date: 20190403
  Transmission Date: 20190711
  Serious: Yes (Other)
  Sender: FDA-Public Use
  Company Number: US-009507513-1903USA012941

PATIENT
  Sex: Female

DRUGS (1)
  1. NEXPLANON [Suspect]
     Active Substance: ETONOGESTREL
     Indication: PRODUCT USED FOR UNKNOWN INDICATION
     Dosage: THE IMPLANT
     Route: 059
     Dates: start: 201803

REACTIONS (6)
  - Menstrual disorder [Unknown]
  - Device deployment issue [Not Recovered/Not Resolved]
  - Complication of device removal [Not Recovered/Not Resolved]
  - Device dislocation [Not Recovered/Not Resolved]
  - Hypoaesthesia [Unknown]
  - Paraesthesia [Unknown]

NARRATIVE: CASE EVENT DATE: 201803
